FAERS Safety Report 7390179-4 (Version None)
Quarter: 2011Q2

REPORT INFORMATION
  Report Type: 
  Country: None (occurrence: None)
  Receive Date: 20110401
  Receipt Date: 20110328
  Transmission Date: 20111010
  Serious: Yes (Death, Hospitalization)
  Sender: FDA-Public Use
  Company Number: PHHY2011US06430

PATIENT
  Sex: Female
  Weight: 54.875 kg

DRUGS (3)
  1. ROCURONIUM [Concomitant]
  2. EXJADE [Suspect]
     Indication: IRON METABOLISM DISORDER
     Dosage: 1500 MG, DAILY
     Route: 048
     Dates: start: 20091009
  3. FENTANYL [Concomitant]
     Dosage: 100 UG, UNK

REACTIONS (5)
  - CEREBRAL HAEMORRHAGE [None]
  - ACUTE RESPIRATORY DISTRESS SYNDROME [None]
  - GRAND MAL CONVULSION [None]
  - RESPIRATORY FAILURE [None]
  - TACHYPNOEA [None]
